FAERS Safety Report 4955276-9 (Version None)
Quarter: 2006Q1

REPORT INFORMATION
  Report Type: 
  Country: None (occurrence: None)
  Receive Date: 20060320
  Receipt Date: 20060307
  Transmission Date: 20060701
  Serious: Yes (Hospitalization, Other)
  Sender: FDA-Public Use
  Company Number: THYM-10563

PATIENT
  Age: 50 Year
  Sex: Female
  Weight: 43.5 kg

DRUGS (9)
  1. THYMOGLOBULIN [Suspect]
     Indication: PROPHYLAXIS AGAINST TRANSPLANT REJECTION
     Dosage: 21.75 MG ONCE IV
     Route: 042
     Dates: start: 20050527, end: 20050527
  2. THYMOGLOBULIN [Suspect]
     Indication: PROPHYLAXIS AGAINST TRANSPLANT REJECTION
     Dosage: 87 MG ONCE IV
     Route: 042
     Dates: start: 20050528, end: 20050528
  3. GRAVOL TAB [Concomitant]
  4. BENADRYL [Concomitant]
  5. ATIVAN [Concomitant]
  6. MAXERAN [Concomitant]
  7. ACETAMINOPHEN [Concomitant]
  8. METHYLPREDNISOLONE [Concomitant]
  9. ALLOPURINOL [Concomitant]

REACTIONS (11)
  - ALANINE AMINOTRANSFERASE INCREASED [None]
  - ASPARTATE AMINOTRANSFERASE INCREASED [None]
  - BLOOD ALKALINE PHOSPHATASE INCREASED [None]
  - BLOOD CREATININE INCREASED [None]
  - BLOOD PRESSURE DECREASED [None]
  - FEELING COLD [None]
  - GASTROINTESTINAL INFLAMMATION [None]
  - ILEUS [None]
  - KLEBSIELLA BACTERAEMIA [None]
  - STAPHYLOCOCCAL BACTERAEMIA [None]
  - VENOOCCLUSIVE DISEASE [None]
